FAERS Safety Report 17382138 (Version 1)
Quarter: 2020Q1

REPORT INFORMATION
  Report Type: Spontaneous
  Country: US (occurrence: US)
  Receive Date: 20200206
  Receipt Date: 20200206
  Transmission Date: 20200409
  Serious: No
  Sender: FDA-Public Use
  Company Number: US-SA-2020SA028978

PATIENT
  Age: 36 Year
  Sex: Female

DRUGS (2)
  1. NUCALA [Suspect]
     Active Substance: MEPOLIZUMAB
  2. DUPIXENT [Suspect]
     Active Substance: DUPILUMAB
     Indication: ASTHMA
     Dosage: 300 MG, QOW
     Route: 058
     Dates: start: 20190404

REACTIONS (7)
  - Vertigo [Recovering/Resolving]
  - Pruritus [Recovering/Resolving]
  - Product use issue [Unknown]
  - Nausea [Recovering/Resolving]
  - Erythema [Recovering/Resolving]
  - Ear pain [Recovering/Resolving]
  - Injection site reaction [Recovering/Resolving]
